FAERS Safety Report 8789381 (Version 1)
Quarter: 2012Q4

REPORT INFORMATION
  Report Type: Spontaneous
  Country: US (occurrence: None)
  Receive Date: 20120905
  Receipt Date: 20120905
  Transmission Date: 20130627
  Serious: Yes (Hospitalization, Other)
  Sender: FDA-Public Use
  Company Number: 2012P1054421

PATIENT
  Sex: Female
  Weight: 90.72 kg

DRUGS (16)
  1. FENTANYL [Suspect]
     Dosage: 1 PATCH;Q72H;TDER
     Route: 062
  2. FENTANYL [Suspect]
     Dosage: 1 PATCH;Q72H;TDER
     Route: 062
  3. FENTANYL [Suspect]
     Indication: ARTHRITIS
     Dosage: 1 PATCH;Q72H;TDER
     Route: 062
  4. FENTANYL [Suspect]
     Indication: OSTEOPOROSIS
     Dosage: 1 PATCH;Q72H;TDER
     Route: 062
  5. FENTANYL [Suspect]
     Indication: ARTHRITIS
     Dates: start: 2000
  6. FENTANYL [Suspect]
     Indication: OSTEOPOROSIS
     Dates: start: 2000
  7. LOVASTATIN [Concomitant]
  8. TRIAMTERENE-HYDROCHLOROTHIAZIDE [Concomitant]
  9. FUROSEMIDE [Concomitant]
  10. FUROSEMIDE [Concomitant]
  11. KLOR-CON M20 [Suspect]
  12. COREG [Concomitant]
  13. LYRICA [Concomitant]
  14. HYDROMORPHONE [Concomitant]
  15. TIZANIDINE [Concomitant]
  16. BABY ASPIRIN [Concomitant]

REACTIONS (6)
  - Nephrolithiasis [None]
  - Hyperhidrosis [None]
  - Night sweats [None]
  - Blood pressure fluctuation [None]
  - Blood pressure increased [None]
  - Diabetes mellitus [None]
